FAERS Safety Report 5067760-0 (Version None)
Quarter: 2006Q3

REPORT INFORMATION
  Report Type: 
  Country: None (occurrence: None)
  Receive Date: 20060731
  Receipt Date: 20060703
  Transmission Date: 20061208
  Serious: Yes (Hospitalization)
  Sender: FDA-Public Use
  Company Number: 2006VX000791

PATIENT
  Age: 53 Year
  Sex: Male

DRUGS (6)
  1. INTERFERON ALFACON-1 [Suspect]
     Indication: HEPATITIS C
     Dosage: 15 UG; QD; SC
     Route: 058
     Dates: start: 20060111
  2. RIBAVIRIN [Concomitant]
  3. ZOLOFT [Concomitant]
  4. ATENOLOL [Concomitant]
  5. FOLIC ACID [Concomitant]
  6. VALIUM [Concomitant]

REACTIONS (8)
  - BRAIN CONTUSION [None]
  - FALL [None]
  - HEAD INJURY [None]
  - LACERATION [None]
  - LOSS OF CONSCIOUSNESS [None]
  - PLATELET COUNT DECREASED [None]
  - PYREXIA [None]
  - TREMOR [None]
